FAERS Safety Report 26207580 (Version 2)
Quarter: 2025Q4

REPORT INFORMATION
  Report Type: Spontaneous
  Country: CN (occurrence: CN)
  Receive Date: 20251229
  Receipt Date: 20251230
  Transmission Date: 20260118
  Serious: Yes (Hospitalization)
  Sender: NOVARTIS
  Company Number: CN-002147023-NVSC2025CN194150

PATIENT
  Age: 54 Year
  Sex: Male
  Weight: 68 kg

DRUGS (2)
  1. EVEROLIMUS [Suspect]
     Active Substance: EVEROLIMUS
     Indication: Renal neoplasm
     Dosage: 5 MG, QD
     Route: 048
     Dates: start: 20251125, end: 20251203
  2. VOROLANIB [Suspect]
     Active Substance: VOROLANIB
     Indication: Renal neoplasm
     Dosage: 200 MG, QD
     Route: 048
     Dates: start: 20251125, end: 20251203

REACTIONS (9)
  - Oral herpes [Recovering/Resolving]
  - Feeding disorder [Unknown]
  - Dysphagia [Unknown]
  - Oral pain [Recovering/Resolving]
  - Asthenia [Recovering/Resolving]
  - Laryngeal pain [Recovering/Resolving]
  - Blood creatine phosphokinase increased [Recovered/Resolved]
  - Blood lactate dehydrogenase increased [Recovered/Resolved]
  - Pyrexia [Unknown]

NARRATIVE: CASE EVENT DATE: 20251203
